FAERS Safety Report 20778051 (Version 7)
Quarter: 2022Q3

REPORT INFORMATION
  Report Type: Spontaneous
  Country: CZ (occurrence: CZ)
  Receive Date: 20220503
  Receipt Date: 20220715
  Transmission Date: 20221026
  Serious: Yes (Hospitalization, Other)
  Sender: FDA-Public Use
  Company Number: CZ-MYLANLABS-2022M1032298

PATIENT
  Age: 67 Year
  Sex: Male
  Weight: 93 kg

DRUGS (37)
  1. NADROPARIN CALCIUM [Suspect]
     Active Substance: NADROPARIN CALCIUM
     Indication: Thrombosis prophylaxis
     Dosage: 0.4 MILLILITER, QD
     Route: 058
  2. NADROPARIN CALCIUM [Suspect]
     Active Substance: NADROPARIN CALCIUM
     Indication: Prophylaxis
  3. CLARITHROMYCIN [Suspect]
     Active Substance: CLARITHROMYCIN
     Indication: Superinfection bacterial
     Dosage: 500 MILLIGRAM, QD
     Route: 065
  4. CLARITHROMYCIN [Suspect]
     Active Substance: CLARITHROMYCIN
     Indication: Antibiotic therapy
     Dosage: UNK UNK, QD
     Route: 065
  5. GENTAMICIN [Suspect]
     Active Substance: GENTAMICIN
     Indication: Superinfection bacterial
     Dosage: 240 MILLIGRAM, QD
     Route: 065
  6. GENTAMICIN [Suspect]
     Active Substance: GENTAMICIN
     Indication: Colitis
  7. CEFOTAXIME [Suspect]
     Active Substance: CEFOTAXIME SODIUM
     Indication: Superinfection bacterial
     Dosage: 2 GRAM, Q8H (2 GRAM, TID)
     Route: 065
  8. CEFOTAXIME [Suspect]
     Active Substance: CEFOTAXIME SODIUM
     Indication: Antibiotic therapy
     Dosage: 2 GRAM, QD
     Route: 065
  9. CEFOTAXIME [Suspect]
     Active Substance: CEFOTAXIME SODIUM
     Dosage: 6 GRAM, QD (2 GRAM, TID)
     Route: 065
  10. PIPERACILLIN SODIUM\TAZOBACTAM SODIUM [Suspect]
     Active Substance: PIPERACILLIN SODIUM\TAZOBACTAM SODIUM
     Indication: Superinfection bacterial
     Dosage: UNK, Q8H (4 G /0.5G AT 8H)
     Route: 065
  11. PIPERACILLIN SODIUM\TAZOBACTAM SODIUM [Suspect]
     Active Substance: PIPERACILLIN SODIUM\TAZOBACTAM SODIUM
     Indication: Colitis
  12. FUROSEMIDE [Suspect]
     Active Substance: FUROSEMIDE
     Indication: Polyuria
     Dosage: 20 MILLIGRAM PER MILLILITRE, Q8H (20 MILLIGRAM PER MILLILITRE, TID)
     Route: 065
  13. FUROSEMIDE [Suspect]
     Active Substance: FUROSEMIDE
     Dosage: 60 MILLIGRAM, QD, (20 MILLIGRAM, TID)
     Route: 065
  14. SOLU-MEDROL [Suspect]
     Active Substance: METHYLPREDNISOLONE SODIUM SUCCINATE
     Indication: COVID-19 pneumonia
     Dosage: 80 MILLIGRAM, QD
     Route: 065
  15. PULMICORT TURBUHALER [Suspect]
     Active Substance: BUDESONIDE
     Indication: COVID-19 pneumonia
     Dosage: 0.5 MILLIGRAM PER MILLILITRE, BID
     Route: 065
  16. PULMICORT TURBUHALER [Suspect]
     Active Substance: BUDESONIDE
     Dosage: 1 DOSAGE FORM, QD
  17. METRONIDAZOLE [Suspect]
     Active Substance: METRONIDAZOLE
     Indication: Superinfection bacterial
     Dosage: 500 MILLIGRAM, Q8H (500 MILLIGRAM, TID)
     Route: 065
  18. METRONIDAZOLE [Suspect]
     Active Substance: METRONIDAZOLE
     Indication: Colitis
     Dosage: UNK
     Route: 065
  19. METRONIDAZOLE [Suspect]
     Active Substance: METRONIDAZOLE
     Dosage: 1500 MILLIGRAM, QD(500 MILLIGRAM, TID)
     Route: 065
  20. AMOXICILLIN\CLAVULANIC ACID [Suspect]
     Active Substance: AMOXICILLIN\CLAVULANIC ACID
     Indication: Superinfection bacterial
     Dosage: 1.2 GRAM, Q8H (1.2 GRAM, TID)
     Route: 065
  21. AMOXICILLIN\CLAVULANIC ACID [Suspect]
     Active Substance: AMOXICILLIN\CLAVULANIC ACID
     Indication: Antibiotic therapy
     Dosage: 1.2 GRAM, QD
     Route: 065
  22. AMOXICILLIN\CLAVULANIC ACID [Suspect]
     Active Substance: AMOXICILLIN\CLAVULANIC ACID
     Dosage: 3.6 GRAM, QD (1.2 GRAM, TID )
     Route: 065
  23. PREDNISONE [Suspect]
     Active Substance: PREDNISONE
     Indication: COVID-19 pneumonia
     Dosage: 30 MG/D WITH GRADUAL DOSE DECREASE BY 5 MG DURING 7 DAYS PERIOD,DISCONTINUE IN MAY/2021
     Route: 065
     Dates: end: 202105
  24. POLYETHYLENE GLYCOL 4000\POTASSIUM CHLORIDE\SODIUM BICARBONATE\SODIUM [Suspect]
     Active Substance: POLYETHYLENE GLYCOL 4000\POTASSIUM CHLORIDE\SODIUM BICARBONATE\SODIUM CHLORIDE\SODIUM SULFATE
     Indication: Colitis
     Dosage: UNK
     Route: 065
  25. POLYETHYLENE GLYCOL 4000\POTASSIUM CHLORIDE\SODIUM BICARBONATE\SODIUM [Suspect]
     Active Substance: POLYETHYLENE GLYCOL 4000\POTASSIUM CHLORIDE\SODIUM BICARBONATE\SODIUM CHLORIDE\SODIUM SULFATE
     Dosage: 0.5 LITER, 0.5 LITER/MAR-2021
     Route: 065
  26. METAMIZOL [Suspect]
     Active Substance: METAMIZOLE SODIUM
     Indication: Colitis
     Dosage: 1000 MILLIGRAM
     Route: 065
  27. METAMIZOL [Suspect]
     Active Substance: METAMIZOLE SODIUM
     Indication: Analgesic therapy
  28. METAMIZOLE [Concomitant]
     Active Substance: METAMIZOLE
     Indication: Analgesic therapy
     Dosage: 100 MILLIGRAM
     Route: 065
  29. METAMIZOLE [Concomitant]
     Active Substance: METAMIZOLE
     Dosage: 1000 MILLIGRAM
     Route: 065
  30. METAMIZOLE [Concomitant]
     Active Substance: METAMIZOLE
     Dosage: UNK
     Route: 065
  31. TARKA [Concomitant]
     Active Substance: TRANDOLAPRIL\VERAPAMIL HYDROCHLORIDE
     Indication: Hypertension
     Dosage: 1 DOSAGE FORM, QD 2 MG/180 MG
     Route: 065
  32. CONTROLOC [Concomitant]
     Active Substance: PANTOPRAZOLE SODIUM
     Indication: Chronic gastritis
     Dosage: 40 MILLIGRAM, QD
     Route: 065
  33. FUROSEMIDE [Concomitant]
     Active Substance: FUROSEMIDE
     Indication: COVID-19 pneumonia
     Dosage: 1 DOSAGE FORM, QD 20 MILLIGRAM PER 2 MILLILITER
  34. PREDNISONE [Concomitant]
     Active Substance: PREDNISONE
     Dosage: 30 MILLIGRAM
     Route: 065
  35. PREDNISONE [Concomitant]
     Active Substance: PREDNISONE
     Dosage: 25 MILLIGRAM
     Route: 065
  36. CLARITHROMYCIN [Concomitant]
     Active Substance: CLARITHROMYCIN
     Dosage: 500 MILLIGRAM, 2X
     Route: 065
  37. BIOPRON [Concomitant]
     Dosage: UNK, BID 9 BILLION CFU CPS
     Route: 065

REACTIONS (6)
  - Clostridium difficile colitis [Recovered/Resolved]
  - Colitis [Recovered/Resolved]
  - Abdominal pain [Recovered/Resolved]
  - Constipation [Recovered/Resolved]
  - White blood cell count increased [Recovered/Resolved]
  - Off label use [Unknown]

NARRATIVE: CASE EVENT DATE: 20210301
